FAERS Safety Report 9929405 (Version 1)
Quarter: 2014Q1

REPORT INFORMATION
  Report Type: Spontaneous
  Country: US (occurrence: US)
  Receive Date: 20140227
  Receipt Date: 20140227
  Transmission Date: 20141002
  Serious: No
  Sender: FDA-Public Use
  Company Number: US-009507513-1312USA002490

PATIENT
  Sex: Female

DRUGS (1)
  1. LOTRIMIN ULTRA [Suspect]
     Indication: WOUND
     Dosage: UNK, UNKNOWN
     Route: 061
     Dates: start: 201311

REACTIONS (2)
  - Off label use [Unknown]
  - Product quality issue [Unknown]
